FAERS Safety Report 5989272-X (Version None)
Quarter: 2008Q4

REPORT INFORMATION
  Report Type: 
  Country: None (occurrence: None)
  Receive Date: 20081205
  Receipt Date: 20081119
  Transmission Date: 20090506
  Serious: Yes (Other)
  Sender: FDA-Public Use
  Company Number: 8040029

PATIENT
  Age: 40 Year
  Sex: Male

DRUGS (5)
  1. PREDNISOLONE [Suspect]
     Indication: IMMUNOSUPPRESSION
     Dosage: 17.5 MG /D PO
     Route: 048
  2. TACROLIMUS [Suspect]
     Indication: IMMUNOSUPPRESSION
     Dosage: 8 MG /D
  3. MIZORIBINE [Suspect]
     Indication: IMMUNOSUPPRESSION
     Dosage: 125 MG /D
  4. MIZORIBINE [Suspect]
     Indication: IMMUNOSUPPRESSION
     Dosage: PO
     Route: 048
  5. MYCOPHENOLATE MOFETIL [Suspect]
     Indication: IMMUNOSUPPRESSION
     Dosage: 1500 MG /D

REACTIONS (4)
  - ECTHYMA [None]
  - HERPES ZOSTER [None]
  - PSEUDOMONAS INFECTION [None]
  - STAPHYLOCOCCAL INFECTION [None]
